FAERS Safety Report 16811150 (Version 1)
Quarter: 2019Q3

REPORT INFORMATION
  Report Type: Spontaneous
  Country: CN (occurrence: CN)
  Receive Date: 20190916
  Receipt Date: 20190916
  Transmission Date: 20191005
  Serious: Yes (Other)
  Sender: FDA-Public Use
  Company Number: CN-PFIZER INC-2019395656

PATIENT
  Age: 12 Month
  Sex: Female

DRUGS (1)
  1. METHYLPREDNISOLONE SODIUM SUCCINATE. [Suspect]
     Active Substance: METHYLPREDNISOLONE SODIUM SUCCINATE
     Indication: ASTHMA
     Dosage: 18 MG, 1X/DAY
     Route: 041
     Dates: start: 20190904, end: 20190904

REACTIONS (1)
  - Vitiligo [Recovering/Resolving]

NARRATIVE: CASE EVENT DATE: 20190904
